FAERS Safety Report 6558294-2 (Version None)
Quarter: 2010Q1

REPORT INFORMATION
  Report Type: 
  Country: None (occurrence: None)
  Receive Date: 20100128
  Receipt Date: 20100128
  Transmission Date: 20100710
  Serious: Yes (Other)
  Sender: FDA-Public Use
  Company Number: None

PATIENT
  Age: 61 Year
  Sex: Female
  Weight: 95.2554 kg

DRUGS (2)
  1. JANUVIA [Suspect]
     Indication: DIABETES MELLITUS
     Dosage: 1 1 A DAY
     Dates: start: 20081218
  2. JANUVIA [Suspect]
     Indication: DIABETES MELLITUS
     Dosage: 1 1 A DAY
     Dates: start: 20090427

REACTIONS (8)
  - CHROMATURIA [None]
  - DYSPEPSIA [None]
  - DYSPNOEA [None]
  - EATING DISORDER [None]
  - FAECES DISCOLOURED [None]
  - MALAISE [None]
  - NAUSEA [None]
  - PAIN [None]
